FAERS Safety Report 4358019-5 (Version None)
Quarter: 2004Q2

REPORT INFORMATION
  Report Type: 
  Country: None (occurrence: None)
  Receive Date: 20040511
  Receipt Date: 20040430
  Transmission Date: 20050107
  Serious: Yes (Death)
  Sender: FDA-Public Use
  Company Number: MK200405-0044-1

PATIENT
  Sex: Female

DRUGS (1)
  1. ANAFRANIL CAP [Suspect]
     Dates: start: 20020309, end: 20020309

REACTIONS (1)
  - COMPLETED SUICIDE [None]
